FAERS Safety Report 12846136 (Version 1)
Quarter: 2016Q4

REPORT INFORMATION
  Report Type: Spontaneous
  Country: JP (occurrence: JP)
  Receive Date: 20161014
  Receipt Date: 20161014
  Transmission Date: 20170207
  Serious: Yes (Hospitalization)
  Sender: FDA-Public Use
  Company Number: JP-AMGEN-JPNSP2016141263

PATIENT
  Age: 84 Year
  Sex: Female

DRUGS (1)
  1. PRALIA [Suspect]
     Active Substance: DENOSUMAB
     Indication: OSTEOPOROSIS
     Dosage: UNK UNK, UNK
     Route: 065
     Dates: start: 20131031

REACTIONS (4)
  - C-reactive protein increased [Unknown]
  - Arthralgia [Unknown]
  - Atypical fracture [Unknown]
  - Matrix metalloproteinase-3 increased [Unknown]

NARRATIVE: CASE EVENT DATE: 201601
